FAERS Safety Report 9419967 (Version 1)
Quarter: 2013Q3

REPORT INFORMATION
  Report Type: Spontaneous
  Country: US (occurrence: None)
  Receive Date: 20130724
  Receipt Date: 20130724
  Transmission Date: 20140515
  Serious: Yes (Disabling)
  Sender: FDA-Public Use
  Company Number: None

PATIENT
  Age: 41 Year
  Sex: Male
  Weight: 86.18 kg

DRUGS (1)
  1. PROPECIA 1 MG MERCK [Suspect]
     Indication: ANDROGENETIC ALOPECIA
     Dosage: 1 DAILY
     Dates: start: 19991230, end: 20010629

REACTIONS (6)
  - Testicular pain [None]
  - Libido decreased [None]
  - Cognitive disorder [None]
  - Depression [None]
  - Educational problem [None]
  - Quality of life decreased [None]
